FAERS Safety Report 18571736 (Version 1)
Quarter: 2020Q4

REPORT INFORMATION
  Report Type: Spontaneous
  Country: US (occurrence: US)
  Receive Date: 20201202
  Receipt Date: 20201202
  Transmission Date: 20210114
  Serious: Yes (Death, Other)
  Sender: FDA-Public Use
  Company Number: US-PURDUE-USA-2020-0176475

PATIENT
  Age: 62 Year
  Sex: Female

DRUGS (1)
  1. OXYCONTIN [Suspect]
     Active Substance: OXYCODONE HYDROCHLORIDE
     Indication: BACK PAIN
     Dosage: UNKNOWN DOSAGE
     Route: 048

REACTIONS (9)
  - Drug dependence [Unknown]
  - Sepsis [Fatal]
  - Acute kidney injury [Unknown]
  - Weight decreased [Unknown]
  - Confusional state [Unknown]
  - Acute myocardial infarction [Unknown]
  - Cardio-respiratory arrest [Fatal]
  - Intestinal perforation [Fatal]
  - Loss of personal independence in daily activities [Unknown]

NARRATIVE: CASE EVENT DATE: 2007
